FAERS Safety Report 11333242 (Version 1)
Quarter: 2015Q3

REPORT INFORMATION
  Report Type: Spontaneous
  Country: US (occurrence: US)
  Receive Date: 20150803
  Receipt Date: 20150803
  Transmission Date: 20151125
  Serious: No
  Sender: FDA-Public Use
  Company Number: US-ELI_LILLY_AND_COMPANY-US200711006706

PATIENT
  Sex: Male

DRUGS (2)
  1. VALIUM [Concomitant]
     Active Substance: DIAZEPAM
  2. ZYPREXA [Suspect]
     Active Substance: OLANZAPINE
     Dosage: 45 MG, UNK
     Dates: start: 20071001, end: 20071121

REACTIONS (5)
  - Prescribed overdose [Recovered/Resolved]
  - Post-traumatic stress disorder [Unknown]
  - Mania [Unknown]
  - Restlessness [Unknown]
  - Anxiety [Unknown]
